FAERS Safety Report 5776878-6 (Version None)
Quarter: 2008Q2

REPORT INFORMATION
  Report Type: 
  Country: None (occurrence: None)
  Receive Date: 20080617
  Receipt Date: 20080617
  Transmission Date: 20081010
  Serious: Yes (Hospitalization)
  Sender: FDA-Public Use
  Company Number: None

PATIENT
  Sex: Male
  Weight: 68 kg

DRUGS (11)
  1. MYCOPHENOLATE MOFETIL [Suspect]
     Indication: IMMUNOSUPPRESSION
     Dosage: 500 MG PO BID
     Route: 048
     Dates: start: 20071022, end: 20080304
  2. PREDNISONE [Concomitant]
  3. TACROLIMUS [Concomitant]
  4. BACTRIM [Concomitant]
  5. RANITIDINE HCL [Concomitant]
  6. ASPIRIN [Concomitant]
  7. ATORVASTATIN [Concomitant]
  8. CLONIDINE [Concomitant]
  9. CLOPIDOGREL [Concomitant]
  10. METOPROLOL SUCCINATE [Concomitant]
  11. AMLODIPINE [Concomitant]

REACTIONS (4)
  - DIARRHOEA [None]
  - NAUSEA [None]
  - VOMITING [None]
  - WEIGHT DECREASED [None]
